FAERS Safety Report 10136819 (Version 1)
Quarter: 2014Q2

REPORT INFORMATION
  Report Type: Spontaneous
  Country: US (occurrence: None)
  Receive Date: 20140425
  Receipt Date: 20140425
  Transmission Date: 20141212
  Serious: Yes (Hospitalization)
  Sender: FDA-Public Use
  Company Number: UTC-046456

PATIENT
  Age: 69 Year
  Sex: Male
  Weight: 70.76 kg

DRUGS (4)
  1. REMODULIN (2.5 MILLIGRAM/MILLILITERS, INJECTION FOR INFUSION) (TREPROSTINIL SODIUM) [Suspect]
     Indication: COR PULMONALE CHRONIC
     Dosage: 20.16UG/KG (0.014 UG/KG, 1 IN 1 MIN) INTRAVENOUS DRIP
     Route: 041
  2. COUMADIN (WARFARIN SODIUM) [Concomitant]
  3. TRACLEER (BOSENTAN) [Concomitant]
  4. ADCIRCA (TADALAFIL) [Concomitant]

REACTIONS (2)
  - Fluid retention [None]
  - Cardiac failure [None]
